FAERS Safety Report 5141595-2 (Version None)
Quarter: 2006Q4

REPORT INFORMATION
  Report Type: 
  Country: None (occurrence: None)
  Receive Date: 20061026
  Receipt Date: 20061017
  Transmission Date: 20070319
  Serious: Yes (Other)
  Sender: FDA-Public Use
  Company Number: 2006097221

PATIENT
  Age: 20 Year
  Sex: Female
  Weight: 65.7716 kg

DRUGS (7)
  1. ZYRTEC [Suspect]
     Indication: RHINITIS ALLERGIC
     Dosage: 10 MG (10 MG, 1 IN 1 D), ORAL
     Route: 048
  2. ZYRTEC-D 12 HOUR [Suspect]
     Indication: RHINITIS ALLERGIC
     Dosage: (2 IN 1 D), ORAL
     Route: 048
  3. ZYRTEC-D 12 HOUR [Suspect]
     Indication: SEASONAL ALLERGY
     Dosage: (2 IN 1 D), ORAL
     Route: 048
  4. SEREVENT [Concomitant]
  5. MONTELUKAST SODIUM (MONTELUKAST SODIUM) [Concomitant]
  6. FLOVENT [Concomitant]
  7. ORTHO TRI-CYCLEN [Concomitant]

REACTIONS (4)
  - ALOPECIA [None]
  - AUTOIMMUNE THYROIDITIS [None]
  - RESPIRATORY DISORDER [None]
  - SWELLING [None]
